FAERS Safety Report 4417514-0 (Version None)
Quarter: 2004Q3

REPORT INFORMATION
  Report Type: 
  Country: None (occurrence: None)
  Receive Date: 20040804
  Receipt Date: 20040713
  Transmission Date: 20050211
  Serious: Yes (Hospitalization, Other)
  Sender: FDA-Public Use
  Company Number: 2004046912

PATIENT
  Age: 54 Year
  Sex: Female
  Weight: 72.5755 kg

DRUGS (2)
  1. NEOSPORIN [Suspect]
     Indication: HERPES SIMPLEX
     Dosage: SMALL AMOUNT ONCE, TOPICAL
     Route: 061
     Dates: start: 20040711, end: 20040711
  2. ROFECOXIB [Concomitant]

REACTIONS (7)
  - FEELING HOT [None]
  - HOT FLUSH [None]
  - HYPOTENSION [None]
  - LOSS OF CONSCIOUSNESS [None]
  - PRURITUS [None]
  - URTICARIA [None]
  - VISUAL DISTURBANCE [None]
